FAERS Safety Report 10803363 (Version 2)
Quarter: 2015Q1

REPORT INFORMATION
  Report Type: Report from Study
  Country: BE (occurrence: BE)
  Receive Date: 20150217
  Receipt Date: 20150224
  Transmission Date: 20150721
  Serious: Yes (Death, Life-Threatening, Hospitalization, Other)
  Sender: FDA-Public Use
  Company Number: BE-CELGENE-BEL-2015012865

PATIENT
  Age: 83 Year
  Sex: Female
  Weight: 62 kg

DRUGS (37)
  1. DAFALGAN [Concomitant]
     Active Substance: ACETAMINOPHEN
     Route: 041
     Dates: start: 20150125, end: 20150126
  2. ALPRAZOLAM. [Concomitant]
     Active Substance: ALPRAZOLAM
     Route: 048
     Dates: start: 20150113, end: 20150119
  3. ALPRAZOLAM. [Concomitant]
     Active Substance: ALPRAZOLAM
     Route: 065
     Dates: start: 20150120, end: 20150120
  4. TEVETEN [Concomitant]
     Active Substance: EPROSARTAN MESYLATE
     Indication: HYPERTENSION
     Route: 048
     Dates: start: 2008
  5. DUROGESIC PATCH [Concomitant]
     Route: 065
     Dates: start: 20150101
  6. ZOLEDRONIC ACID [Concomitant]
     Active Substance: ZOLEDRONIC ACID
     Indication: PRODUCT USED FOR UNKNOWN INDICATION
     Route: 041
     Dates: start: 20141231
  7. CALCIUM CARBONATE. [Concomitant]
     Active Substance: CALCIUM CARBONATE
     Route: 065
     Dates: start: 20150113, end: 20150118
  8. PHYSIOLOGIC SERUM [Concomitant]
     Indication: NASAL DRYNESS
     Route: 065
     Dates: start: 20141231, end: 20150106
  9. REVLIMID [Suspect]
     Active Substance: LENALIDOMIDE
     Indication: PLASMA CELL MYELOMA
     Dosage: 25 MILLIGRAM
     Route: 048
     Dates: start: 20141230, end: 20150114
  10. ALPRAZOLAM. [Concomitant]
     Active Substance: ALPRAZOLAM
     Route: 048
     Dates: start: 20141230
  11. SERFAIN [Concomitant]
     Indication: DEPRESSION
     Route: 048
     Dates: start: 1998
  12. DUROGESIC PATCH [Concomitant]
     Indication: FRACTURE
     Dosage: 50 MILLIGRAM
     Route: 062
     Dates: start: 20141204
  13. DUROGESIC PATCH [Concomitant]
     Route: 065
     Dates: start: 20150114, end: 20150123
  14. FRAXIPARIN [Concomitant]
     Active Substance: NADROPARIN CALCIUM
     Indication: PRODUCT USED FOR UNKNOWN INDICATION
     Route: 065
     Dates: start: 20141231, end: 20150113
  15. XENOXIN [Concomitant]
     Indication: PRODUCT USED FOR UNKNOWN INDICATION
     Route: 065
  16. AUGMENTIN [Suspect]
     Active Substance: AMOXICILLIN\CLAVULANATE POTASSIUM
     Indication: COUGH
     Dosage: 875/125 MG
     Route: 065
     Dates: start: 20141231, end: 20150112
  17. LIDOCAINE. [Concomitant]
     Active Substance: LIDOCAINE
     Indication: DEEP VEIN THROMBOSIS
     Dosage: 700MG/140 CM2
     Route: 062
     Dates: start: 20141219, end: 20141230
  18. ALPRAZOLAM. [Concomitant]
     Active Substance: ALPRAZOLAM
     Indication: DEPRESSION
     Route: 048
     Dates: start: 20141202
  19. GLYCERINE [Concomitant]
     Active Substance: GLYCERIN
     Indication: PRODUCT USED FOR UNKNOWN INDICATION
     Route: 065
  20. AMIODARONE [Concomitant]
     Active Substance: AMIODARONE
     Indication: ATRIAL FIBRILLATION
     Route: 048
     Dates: start: 20141226
  21. ENOXAPARIN [Concomitant]
     Active Substance: ENOXAPARIN
     Indication: PULMONARY EMBOLISM
     Route: 058
     Dates: start: 20141230
  22. ZANIDIP [Concomitant]
     Active Substance: LERCANIDIPINE HYDROCHLORIDE
     Indication: HYPERTENSION
     Route: 048
     Dates: start: 2008
  23. CORDARONE [Concomitant]
     Active Substance: AMIODARONE HYDROCHLORIDE
     Indication: PRODUCT USED FOR UNKNOWN INDICATION
     Route: 048
     Dates: start: 20141226
  24. ENOXAPARIN [Concomitant]
     Active Substance: ENOXAPARIN
     Dosage: 80+400MG/5ML
     Route: 065
     Dates: start: 20150116
  25. CALCIUM CARBONATE. [Concomitant]
     Active Substance: CALCIUM CARBONATE
     Indication: PRODUCT USED FOR UNKNOWN INDICATION
     Route: 065
     Dates: start: 20141230, end: 20141230
  26. BLINDED MLN9708 [Suspect]
     Active Substance: IXAZOMIB
     Indication: PLASMA CELL MYELOMA
     Dosage: 20 MILLIGRAM
     Route: 048
     Dates: start: 20141230, end: 20150127
  27. COLECALCIFEROL [Concomitant]
     Active Substance: CHOLECALCIFEROL
     Indication: OSTEOPOROSIS
     Route: 048
     Dates: start: 2008, end: 20150119
  28. EMTENOL [Concomitant]
     Indication: PRODUCT USED FOR UNKNOWN INDICATION
     Route: 065
     Dates: start: 20141231, end: 20150112
  29. ALPRAZOLAM. [Concomitant]
     Active Substance: ALPRAZOLAM
     Route: 048
     Dates: start: 20141231, end: 20150112
  30. MOVICOL [Concomitant]
     Active Substance: POLYETHYLENE GLYCOL 3350\POTASSIUM CHLORIDE\SODIUM BICARBONATE\SODIUM CHLORIDE
     Indication: IRRITABLE BOWEL SYNDROME
     Route: 048
     Dates: start: 20141202, end: 20150117
  31. PANTOMED [Concomitant]
     Active Substance: DEXPANTHENOL
     Indication: PROPHYLAXIS AGAINST GASTROINTESTINAL ULCER
     Dosage: 25000 IU (INTERNATIONAL UNIT)
     Route: 048
     Dates: start: 20141218
  32. PANTOMED [Concomitant]
     Active Substance: DEXPANTHENOL
     Route: 048
     Dates: start: 20141231, end: 20150113
  33. D-VITAL FORTE [Concomitant]
     Indication: PRODUCT USED FOR UNKNOWN INDICATION
     Dosage: 1000/880
     Route: 065
     Dates: start: 20141231, end: 20150112
  34. FRAXODI [Concomitant]
     Active Substance: NADROPARIN CALCIUM
     Indication: PRODUCT USED FOR UNKNOWN INDICATION
     Route: 058
     Dates: start: 20150106, end: 20150112
  35. DEXAMETHASONE. [Suspect]
     Active Substance: DEXAMETHASONE
     Indication: PLASMA CELL MYELOMA
     Route: 048
     Dates: start: 20141230, end: 20150120
  36. DAFALGAN [Concomitant]
     Active Substance: ACETAMINOPHEN
     Indication: RIB FRACTURE
     Route: 048
     Dates: start: 20141219, end: 20150122
  37. ZANIDIP [Concomitant]
     Active Substance: LERCANIDIPINE HYDROCHLORIDE
     Route: 048
     Dates: start: 2008, end: 20150120

REACTIONS (4)
  - Septic shock [Fatal]
  - Rash [Not Recovered/Not Resolved]
  - Influenza [Not Recovered/Not Resolved]
  - Dyspnoea [Not Recovered/Not Resolved]

NARRATIVE: CASE EVENT DATE: 20150108
